FAERS Safety Report 4850639-4 (Version None)
Quarter: 2005Q4

REPORT INFORMATION
  Report Type: 
  Country: None (occurrence: None)
  Receive Date: 20051212
  Receipt Date: 20051130
  Transmission Date: 20060501
  Serious: Yes (Other)
  Sender: FDA-Public Use
  Company Number: US-JNJFOC-20051200243

PATIENT
  Sex: Male
  Weight: 127.01 kg

DRUGS (4)
  1. REMICADE [Suspect]
     Route: 042
  2. REMICADE [Suspect]
     Indication: CROHN'S DISEASE
     Route: 042
  3. ACIDOPHILUS [Concomitant]
  4. FIBER CHOICE [Concomitant]

REACTIONS (3)
  - CHILLS [None]
  - INFUSION RELATED REACTION [None]
  - THYROID GLAND CANCER [None]
